FAERS Safety Report 9748292 (Version 1)
Quarter: 2013Q4

REPORT INFORMATION
  Report Type: Spontaneous
  Country: FR (occurrence: FR)
  Receive Date: 20131212
  Receipt Date: 20131212
  Transmission Date: 20140711
  Serious: Yes (Other)
  Sender: FDA-Public Use
  Company Number: FR-JNJFOC-20131118317

PATIENT
  Age: 88 Year
  Sex: Male

DRUGS (11)
  1. ZYTIGA [Suspect]
     Indication: PROSTATE CANCER METASTATIC
     Route: 048
     Dates: start: 20130706, end: 20131018
  2. SOLUPRED [Suspect]
     Indication: PROSTATE CANCER METASTATIC
     Route: 048
     Dates: start: 20130606, end: 20131018
  3. ENANTONE [Concomitant]
     Indication: HORMONE THERAPY
     Route: 065
  4. ORMANDYL [Concomitant]
     Indication: HORMONE THERAPY
     Route: 065
     Dates: start: 201302
  5. PLAVIX [Concomitant]
     Indication: PRODUCT USED FOR UNKNOWN INDICATION
     Route: 065
  6. IKOREL [Concomitant]
     Indication: PRODUCT USED FOR UNKNOWN INDICATION
     Route: 065
  7. ATACAND [Concomitant]
     Indication: PRODUCT USED FOR UNKNOWN INDICATION
     Route: 065
  8. SOPROL [Concomitant]
     Indication: PRODUCT USED FOR UNKNOWN INDICATION
     Route: 065
  9. DENOSUMAB [Concomitant]
     Indication: METASTASES TO BONE
     Route: 058
     Dates: start: 20130809
  10. CALCIUM [Concomitant]
     Indication: SUPPLEMENTATION THERAPY
     Route: 065
  11. VITAMIN D [Concomitant]
     Indication: SUPPLEMENTATION THERAPY
     Route: 065

REACTIONS (9)
  - Oedema peripheral [Recovering/Resolving]
  - Fluid retention [Recovering/Resolving]
  - Toxicity to various agents [Unknown]
  - Nausea [Not Recovered/Not Resolved]
  - Prostatic specific antigen increased [Unknown]
  - Brain natriuretic peptide increased [Unknown]
  - Decreased appetite [Unknown]
  - Weight decreased [Unknown]
  - Localised oedema [Unknown]
